FAERS Safety Report 6559875-2 (Version None)
Quarter: 2010Q1

REPORT INFORMATION
  Report Type: 
  Country: None (occurrence: None)
  Receive Date: 20100129
  Receipt Date: 20090911
  Transmission Date: 20100710
  Serious: No
  Sender: FDA-Public Use
  Company Number: US-ABBOTT-09P-163-0597193-00

PATIENT
  Sex: Male
  Weight: 95.34 kg

DRUGS (6)
  1. HUMIRA [Suspect]
     Indication: COLITIS ULCERATIVE
     Dates: start: 20090801, end: 20090801
  2. HUMIRA [Suspect]
     Dates: start: 20090901, end: 20090901
  3. AZATHIOPRINE [Concomitant]
     Indication: COLITIS ULCERATIVE
  4. BALSALAZIDE DISODIUM [Concomitant]
     Indication: COLITIS ULCERATIVE
  5. NORVASC [Concomitant]
     Indication: HYPERTENSION
  6. BONIVA [Concomitant]
     Indication: OSTEOPOROSIS

REACTIONS (1)
  - DRUG INEFFECTIVE [None]
